FAERS Safety Report 7228371 (Version 2)
Quarter: 2014Q2

REPORT INFORMATION
  Report Type: Spontaneous
  Country: GB (occurrence: None)
  Receive Date: 20091207
  Receipt Date: 20140415
  Transmission Date: 20141212
  Serious: Yes (Other)
  Sender: FDA-Public Use
  Company Number: AUR-APL-2009-01365

PATIENT
  Age: 62 Year
  Sex: Female

DRUGS (2)
  1. TERBINAFINE [Suspect]
     Indication: ONYCHOMYCOSIS
     Route: 048
  2. PREDNISOLONE [Concomitant]

REACTIONS (7)
  - Rash papular [None]
  - Leukocytosis [None]
  - Neutrophilia [None]
  - Blood creatinine increased [None]
  - Rash pustular [None]
  - Skin oedema [None]
  - Acute generalised exanthematous pustulosis [None]
